FAERS Safety Report 11468355 (Version 1)
Quarter: 2015Q3

REPORT INFORMATION
  Report Type: Spontaneous
  Country: US (occurrence: None)
  Receive Date: 20150904
  Receipt Date: 20150904
  Transmission Date: 20151125
  Serious: Yes (Other)
  Sender: FDA-Public Use
  Company Number: None

PATIENT
  Age: 43 Year
  Sex: Female
  Weight: 72.58 kg

DRUGS (7)
  1. VENLAFAXINE HCL [Suspect]
     Active Substance: VENLAFAXINE HYDROCHLORIDE
     Indication: DEPRESSION
     Route: 048
     Dates: start: 20150630, end: 20150902
  2. CALCIUM [Concomitant]
     Active Substance: CALCIUM
  3. D [Concomitant]
  4. HAIR SKIN AND NAILS SUPPLEMENT [Concomitant]
  5. C [Concomitant]
  6. VENLAFAXINE HCL [Suspect]
     Active Substance: VENLAFAXINE HYDROCHLORIDE
     Indication: GENERALISED ANXIETY DISORDER
     Route: 048
     Dates: start: 20150630, end: 20150902
  7. VITAMIN B COMPLEX [Concomitant]
     Active Substance: CYANOCOBALAMIN\DEXPANTHENOL\NIACINAMIDE\PYRIDOXINE HYDROCHLORIDE\RIBOFLAVIN 5^-PHOSPHATE SODIUM\THIAMINE HYDROCHLORIDE\VITAMIN B COMPLEX

REACTIONS (10)
  - Hyperhidrosis [None]
  - Malaise [None]
  - Tremor [None]
  - Nightmare [None]
  - Product substitution issue [None]
  - Nausea [None]
  - Dizziness [None]
  - Speech disorder [None]
  - Lethargy [None]
  - Confusional state [None]

NARRATIVE: CASE EVENT DATE: 20150902
